FAERS Safety Report 22156555 (Version 5)
Quarter: 2025Q2

REPORT INFORMATION
  Report Type: Spontaneous
  Country: JP (occurrence: JP)
  Receive Date: 20230330
  Receipt Date: 20250423
  Transmission Date: 20250716
  Serious: Yes (Hospitalization, Other)
  Sender: LUNDBECK
  Company Number: JP-SA-2022SA188968

PATIENT
  Age: 4 Month
  Sex: Male
  Weight: 6.4 kg

DRUGS (33)
  1. SABRIL [Suspect]
     Active Substance: VIGABATRIN
     Indication: Infantile spasms
     Dosage: 125 MG, BID
     Route: 048
     Dates: start: 20210205, end: 20210427
  2. SABRIL [Suspect]
     Active Substance: VIGABATRIN
     Dosage: 300 MG, BID
     Route: 048
     Dates: start: 20230306, end: 20230321
  3. SABRIL [Suspect]
     Active Substance: VIGABATRIN
     Dosage: 250 MG, BID
     Route: 048
     Dates: start: 20230322, end: 20230627
  4. SABRIL [Suspect]
     Active Substance: VIGABATRIN
     Dosage: 200 MG, BID
     Route: 048
     Dates: start: 20230628, end: 20230723
  5. SABRIL [Suspect]
     Active Substance: VIGABATRIN
     Dosage: 150 MG, BID
     Route: 048
     Dates: start: 20230724, end: 20230815
  6. SABRIL [Suspect]
     Active Substance: VIGABATRIN
     Dosage: 100 MG, BID
     Route: 048
     Dates: start: 20230816, end: 20230905
  7. SABRIL [Suspect]
     Active Substance: VIGABATRIN
     Dosage: 50 MG, BID
     Route: 048
     Dates: start: 20230906, end: 20230927
  8. SABRIL [Suspect]
     Active Substance: VIGABATRIN
     Dosage: 160 MG, BID
     Route: 048
     Dates: start: 20210428, end: 20220111
  9. SABRIL [Suspect]
     Active Substance: VIGABATRIN
     Dosage: 185 MG, BID
     Route: 048
     Dates: start: 20220112, end: 20220322
  10. SABRIL [Suspect]
     Active Substance: VIGABATRIN
     Dosage: 210 MG, BID
     Route: 048
     Dates: start: 20220323, end: 20220426
  11. SABRIL [Suspect]
     Active Substance: VIGABATRIN
     Dosage: 235 MG, BID
     Route: 048
     Dates: start: 20220427, end: 20220522
  12. SABRIL [Suspect]
     Active Substance: VIGABATRIN
     Dosage: 260 MG, BID
     Route: 048
     Dates: start: 20220523, end: 20220612
  13. SABRIL [Suspect]
     Active Substance: VIGABATRIN
     Dosage: 285 MG, BID
     Route: 048
     Dates: start: 20220613, end: 20220628
  14. SABRIL [Suspect]
     Active Substance: VIGABATRIN
     Dosage: 310 MG, BID
     Route: 048
     Dates: start: 20220629, end: 20220830
  15. SABRIL [Suspect]
     Active Substance: VIGABATRIN
     Dosage: 350 MG, BID
     Route: 048
     Dates: start: 20220831, end: 20230305
  16. LEVETIRACETAM [Concomitant]
     Active Substance: LEVETIRACETAM
     Indication: Partial seizures
     Route: 048
     Dates: start: 20210127, end: 20210131
  17. LEVETIRACETAM [Concomitant]
     Active Substance: LEVETIRACETAM
     Route: 048
     Dates: start: 20230628, end: 20231003
  18. LEVETIRACETAM [Concomitant]
     Active Substance: LEVETIRACETAM
     Route: 048
     Dates: start: 20231004, end: 20231017
  19. LEVETIRACETAM [Concomitant]
     Active Substance: LEVETIRACETAM
     Route: 048
     Dates: start: 20231018, end: 20231121
  20. LEVETIRACETAM [Concomitant]
     Active Substance: LEVETIRACETAM
     Indication: Partial seizures
     Route: 048
     Dates: start: 20210201, end: 20210314
  21. LEVETIRACETAM [Concomitant]
     Active Substance: LEVETIRACETAM
     Route: 048
     Dates: start: 20210315, end: 20210406
  22. LEVETIRACETAM [Concomitant]
     Active Substance: LEVETIRACETAM
     Route: 048
     Dates: start: 20210407, end: 20220208
  23. LEVETIRACETAM [Concomitant]
     Active Substance: LEVETIRACETAM
     Route: 048
     Dates: start: 20220209, end: 20230110
  24. LEVETIRACETAM [Concomitant]
     Active Substance: LEVETIRACETAM
     Route: 048
     Dates: start: 20230111, end: 20230115
  25. LEVETIRACETAM [Concomitant]
     Active Substance: LEVETIRACETAM
     Route: 048
     Dates: start: 20231122
  26. LEVETIRACETAM [Concomitant]
     Active Substance: LEVETIRACETAM
     Route: 048
     Dates: start: 20230116, end: 20230528
  27. LEVETIRACETAM [Concomitant]
     Active Substance: LEVETIRACETAM
     Route: 048
     Dates: start: 20230529, end: 20230627
  28. PHENOBARBITAL [Concomitant]
     Active Substance: PHENOBARBITAL
     Indication: Partial seizures
     Route: 048
     Dates: start: 20210127, end: 20210203
  29. PHENOBARBITAL [Concomitant]
     Active Substance: PHENOBARBITAL
     Route: 048
     Dates: start: 20210204, end: 20210207
  30. PHENOBARBITAL [Concomitant]
     Active Substance: PHENOBARBITAL
     Route: 048
     Dates: start: 20210208, end: 20210223
  31. PHENOBARBITAL [Concomitant]
     Active Substance: PHENOBARBITAL
     Route: 048
     Dates: start: 20210224, end: 20210308
  32. PHENOBARBITAL [Concomitant]
     Active Substance: PHENOBARBITAL
     Route: 048
     Dates: start: 20210309, end: 20210311
  33. PHENOBARBITAL [Concomitant]
     Active Substance: PHENOBARBITAL
     Route: 048
     Dates: start: 20210312

REACTIONS (5)
  - Partial seizures [Recovering/Resolving]
  - Condition aggravated [Recovering/Resolving]
  - Magnetic resonance imaging head abnormal [Not Recovered/Not Resolved]
  - Partial seizures [Not Recovered/Not Resolved]
  - Condition aggravated [Not Recovered/Not Resolved]

NARRATIVE: CASE EVENT DATE: 20210308
